FAERS Safety Report 20050244 (Version 1)
Quarter: 2021Q4

REPORT INFORMATION
  Report Type: Spontaneous
  Country: BG (occurrence: BG)
  Receive Date: 20211109
  Receipt Date: 20211109
  Transmission Date: 20220303
  Serious: Yes (Other)
  Sender: FDA-Public Use
  Company Number: BG-JNJFOC-20211061525

PATIENT

DRUGS (1)
  1. ZAVESCA [Suspect]
     Active Substance: MIGLUSTAT
     Indication: Niemann-Pick disease
     Route: 048

REACTIONS (1)
  - Ataxia [Unknown]
